FAERS Safety Report 13375131 (Version 1)
Quarter: 2017Q1

REPORT INFORMATION
  Report Type: Spontaneous
  Country: US (occurrence: US)
  Receive Date: 20170327
  Receipt Date: 20170327
  Transmission Date: 20170429
  Serious: Yes (Other)
  Sender: FDA-Public Use
  Company Number: US-BAUSCH-BL-2017-007967

PATIENT
  Sex: Female

DRUGS (1)
  1. XIFAXAN [Suspect]
     Active Substance: RIFAXIMIN
     Indication: LIVER DISORDER
     Route: 065

REACTIONS (6)
  - Dialysis [Unknown]
  - Chronic hepatic failure [Unknown]
  - Off label use [Unknown]
  - Oedema peripheral [Unknown]
  - Adverse event [Unknown]
  - Ascites [Unknown]
